FAERS Safety Report 6327159-3 (Version None)
Quarter: 2009Q3

REPORT INFORMATION
  Report Type: 
  Country: None (occurrence: None)
  Receive Date: 20090825
  Receipt Date: 20090817
  Transmission Date: 20100115
  Serious: Yes (Life-Threatening, Hospitalization)
  Sender: FDA-Public Use
  Company Number: B0588887A

PATIENT
  Sex: Female

DRUGS (1)
  1. LAMICTAL [Suspect]
     Route: 048
     Dates: start: 20090507, end: 20090615

REACTIONS (18)
  - ANTINUCLEAR ANTIBODY POSITIVE [None]
  - ATRIAL FIBRILLATION [None]
  - C-REACTIVE PROTEIN INCREASED [None]
  - CHOLESTASIS [None]
  - DRUG INTOLERANCE [None]
  - DRUG RASH WITH EOSINOPHILIA AND SYSTEMIC SYMPTOMS [None]
  - EOSINOPHILIA [None]
  - ERYTHEMA [None]
  - GENERAL PHYSICAL HEALTH DETERIORATION [None]
  - HYPERTHYROIDISM [None]
  - INAPPROPRIATE SCHEDULE OF DRUG ADMINISTRATION [None]
  - LEUKOCYTOSIS [None]
  - LYMPHADENOPATHY [None]
  - NEUTROPHILIA [None]
  - PYREXIA [None]
  - RASH PRURITIC [None]
  - SKIN EXFOLIATION [None]
  - TOXIC SKIN ERUPTION [None]
